FAERS Safety Report 13007769 (Version 1)
Quarter: 2016Q4

REPORT INFORMATION
  Report Type: Spontaneous
  Country: US (occurrence: US)
  Receive Date: 20161207
  Receipt Date: 20161207
  Transmission Date: 20170207
  Serious: Yes (Hospitalization, Other)
  Sender: FDA-Public Use
  Company Number: US-ASTRAZENECA-2016SF27676

PATIENT
  Age: 20821 Day
  Sex: Male
  Weight: 86.2 kg

DRUGS (1)
  1. NEXIUM [Suspect]
     Active Substance: ESOMEPRAZOLE MAGNESIUM
     Indication: DYSPEPSIA
     Dosage: UNKNOWN
     Route: 048
     Dates: end: 20160627

REACTIONS (7)
  - Hiatus hernia [Unknown]
  - Dyspepsia [Unknown]
  - Acute kidney injury [Recovering/Resolving]
  - Weight decreased [Recovered/Resolved]
  - Intentional product use issue [Unknown]
  - Anaemia [Recovering/Resolving]
  - Confusional state [Unknown]

NARRATIVE: CASE EVENT DATE: 20160627
